FAERS Safety Report 5710248-1 (Version None)
Quarter: 2008Q2

REPORT INFORMATION
  Report Type: 
  Country: None (occurrence: None)
  Receive Date: 20080418
  Receipt Date: 20080407
  Transmission Date: 20081010
  Serious: Yes (Other)
  Sender: FDA-Public Use
  Company Number: AU-PFIZER INC-2008022443

PATIENT
  Sex: Female

DRUGS (4)
  1. CHAMPIX [Suspect]
     Indication: SMOKING CESSATION THERAPY
     Route: 048
  2. MICROGYNON [Concomitant]
  3. VALTREX [Concomitant]
  4. LOVAN [Concomitant]
     Indication: DEPRESSION
     Route: 048

REACTIONS (4)
  - BRADYPHRENIA [None]
  - JUDGEMENT IMPAIRED [None]
  - MENSTRUAL DISORDER [None]
  - ROAD TRAFFIC ACCIDENT [None]
